FAERS Safety Report 4674172-8 (Version None)
Quarter: 2005Q2

REPORT INFORMATION
  Report Type: 
  Country: None (occurrence: None)
  Receive Date: 20050524
  Receipt Date: 20050524
  Transmission Date: 20051028
  Serious: No
  Sender: FDA-Public Use
  Company Number: None

PATIENT
  Sex: Female
  Weight: 90 kg

DRUGS (3)
  1. ETOPOSIDE [Suspect]
     Dosage: 10 MG/KG/DAY CIV ON DAYS 1-4 (TOTAL DOSE IS 40 MG/KG)
     Route: 042
     Dates: start: 20050509
  2. CYTARABINE [Suspect]
     Dosage: 2 G/M2 IV OVER 2 HOURS Q 12 H ON DAYS 1-4 (TOTAL OF 8 DOSES)
     Route: 042
  3. G-CSF [Suspect]
     Dosage: 10 MCG/KG//DAY SC BEGINNING ON DAY 14 UNTIL PBSC COLLECTION IS COMPLETED OR WBC } 50, 000 /MCL
     Route: 058

REACTIONS (3)
  - BLOOD COUNT ABNORMAL [None]
  - MUCOSAL INFLAMMATION [None]
  - PAIN [None]
